FAERS Safety Report 9150008 (Version 2)
Quarter: 2015Q1

REPORT INFORMATION
  Report Type: Spontaneous
  Country: US (occurrence: None)
  Receive Date: 20130219
  Receipt Date: 20150202
  Transmission Date: 20150721
  Serious: Yes (Other)
  Sender: FDA-Public Use
  Company Number: TPA2013A01421

PATIENT
  Age: 30 Year
  Sex: Female
  Weight: 80.3 kg

DRUGS (1)
  1. DEXILANT [Suspect]
     Active Substance: DEXLANSOPRAZOLE
     Dates: start: 20121111, end: 20121111

REACTIONS (4)
  - Anaphylactic reaction [None]
  - Rash [None]
  - Pruritus [None]
  - Drug ineffective [None]

NARRATIVE: CASE EVENT DATE: 201211
